FAERS Safety Report 5633353-7 (Version None)
Quarter: 2008Q1

REPORT INFORMATION
  Report Type: 
  Country: None (occurrence: None)
  Receive Date: 20080221
  Receipt Date: 20080211
  Transmission Date: 20080703
  Serious: Yes (Death)
  Sender: FDA-Public Use
  Company Number: US-PFIZER INC-2008014134

PATIENT
  Sex: Male

DRUGS (2)
  1. XANAX [Suspect]
  2. OXYMORPHONE HCL [Suspect]
     Route: 048

REACTIONS (3)
  - DRUG ABUSE [None]
  - INTENTIONAL DRUG MISUSE [None]
  - OVERDOSE [None]
